FAERS Safety Report 5612257-X (Version None)
Quarter: 2008Q1

REPORT INFORMATION
  Report Type: 
  Country: None (occurrence: None)
  Receive Date: 20080131
  Receipt Date: 20080131
  Transmission Date: 20080703
  Serious: No
  Sender: FDA-Public Use
  Company Number: None

PATIENT
  Age: 76 Year
  Sex: Female
  Weight: 99.7913 kg

DRUGS (2)
  1. OLANZAPINE [Suspect]
     Indication: ANXIETY
     Dosage: 2.5 AS NEEDED PO
     Route: 048
     Dates: start: 20000108, end: 20080129
  2. ATIVAN [Suspect]
     Indication: ANXIETY
     Dosage: 0.5 AS NEEDED PO
     Route: 048
     Dates: start: 20000108, end: 20080129

REACTIONS (2)
  - ANKLE FRACTURE [None]
  - DIZZINESS [None]
